FAERS Safety Report 13530989 (Version 1)
Quarter: 2017Q2

REPORT INFORMATION
  Report Type: Spontaneous
  Country: NO (occurrence: NO)
  Receive Date: 20170510
  Receipt Date: 20170510
  Transmission Date: 20170830
  Serious: Yes (Disabling)
  Sender: FDA-Public Use
  Company Number: NO-ALKABELLO-2016AA000423

PATIENT
  Age: 37 Year
  Sex: Female

DRUGS (5)
  1. ZANTAC [Concomitant]
     Active Substance: RANITIDINE HYDROCHLORIDE
  2. CYCLIZINE [Concomitant]
     Active Substance: CYCLIZINE
  3. CIRCADIN [Concomitant]
     Active Substance: MELATONIN
  4. RANITIDINE. [Concomitant]
     Active Substance: RANITIDINE
     Indication: DYSPEPSIA
  5. GRAZAX [Suspect]
     Active Substance: PHLEUM PRATENSE POLLEN
     Indication: SEASONAL ALLERGY
     Dates: start: 20121127, end: 20130925

REACTIONS (8)
  - Regurgitation [Unknown]
  - Mouth swelling [Recovered/Resolved]
  - Abdominal pain upper [Unknown]
  - Arthralgia [Unknown]
  - Myalgia [Unknown]
  - Paraesthesia oral [Recovered/Resolved]
  - Post viral fatigue syndrome [Not Recovered/Not Resolved]
  - Dyspepsia [Unknown]

NARRATIVE: CASE EVENT DATE: 2012
